FAERS Safety Report 5735679-5 (Version None)
Quarter: 2008Q2

REPORT INFORMATION
  Report Type: 
  Country: None (occurrence: None)
  Receive Date: 20080512
  Receipt Date: 20080507
  Transmission Date: 20081010
  Serious: Yes (Other)
  Sender: FDA-Public Use
  Company Number: ES-ABBOTT-08P-144-0447582-00

PATIENT
  Age: 61 Year
  Sex: Male

DRUGS (3)
  1. HUMIRA [Suspect]
     Indication: ANKYLOSING SPONDYLITIS
     Route: 058
     Dates: start: 20060701, end: 20080408
  2. SALICILIC ACETIL ACID [Concomitant]
     Indication: PROPHYLAXIS
     Route: 048
  3. SALICILIC ACETIL ACID [Concomitant]
     Indication: MYOCARDIAL INFARCTION

REACTIONS (2)
  - SKIN LESION [None]
  - TOXIC SKIN ERUPTION [None]
